FAERS Safety Report 25030201 (Version 1)
Quarter: 2025Q1

REPORT INFORMATION
  Report Type: Spontaneous
  Country: FR (occurrence: FR)
  Receive Date: 20250303
  Receipt Date: 20250303
  Transmission Date: 20250409
  Serious: Yes (Hospitalization, Other)
  Sender: HIKMA
  Company Number: None

PATIENT
  Age: 74 Year
  Sex: Female
  Weight: 73.4 kg

DRUGS (6)
  1. DAPTOMYCIN [Suspect]
     Active Substance: DAPTOMYCIN
     Dosage: 700 MILLIGRAM, QD
     Route: 042
     Dates: start: 20250205
  2. DAPTOMYCIN [Suspect]
     Active Substance: DAPTOMYCIN
     Dosage: 700 MILLIGRAM, QOD
     Route: 042
     Dates: start: 20250128, end: 20250204
  3. DAPTOMYCIN [Suspect]
     Active Substance: DAPTOMYCIN
     Indication: Endocarditis bacterial
     Dosage: 750 MILLIGRAM, QD
     Route: 042
     Dates: start: 20250109, end: 20250113
  4. CALCIPARINE [Concomitant]
     Active Substance: HEPARIN CALCIUM
     Indication: Thrombosis prophylaxis
     Dosage: 1 DOSAGE FORM, Q8H
     Route: 058
     Dates: start: 20250128, end: 20250128
  5. CALCIPARINE [Concomitant]
     Active Substance: HEPARIN CALCIUM
     Dosage: 5000 INTERNATIONAL UNIT, Q12H
     Route: 058
     Dates: start: 20250129, end: 20250205
  6. PANTOPRAZOLE [Concomitant]
     Active Substance: PANTOPRAZOLE
     Indication: Gastrointestinal disorder
     Dosage: 40 MILLIGRAM, QD
     Route: 042
     Dates: start: 20250129, end: 20250205

REACTIONS (1)
  - Haemolytic anaemia [Recovering/Resolving]

NARRATIVE: CASE EVENT DATE: 20250208
